FAERS Safety Report 16785273 (Version 6)
Quarter: 2020Q3

REPORT INFORMATION
  Report Type: Report from Study
  Country: JP (occurrence: JP)
  Receive Date: 20190909
  Receipt Date: 20191213
  Transmission Date: 20201105
  Serious: Yes (Death, Hospitalization)
  Sender: FDA-Public Use
  Company Number: JP-ROCHE-2402398

PATIENT
  Age: 79 Year
  Sex: Female
  Weight: 50 kg

DRUGS (13)
  1. SENNA [Concomitant]
     Active Substance: SENNA LEAF\SENNOSIDES\SENNOSIDES A AND B
     Indication: CONSTIPATION
     Dosage: BEGINNING OF DOSAGE DAY: TRIAL PREINITIATION
     Route: 048
  2. BENDAMUSTINE [Suspect]
     Active Substance: BENDAMUSTINE
     Indication: DIFFUSE LARGE B-CELL LYMPHOMA
     Dosage: MOST RECENT DOSE PRIOR TO EVENT ONSET: 25/JUL/2019?SIX CYCLES
     Route: 042
     Dates: start: 20190403
  3. VALACICLOVIR [Concomitant]
     Active Substance: VALACYCLOVIR HYDROCHLORIDE
     Indication: INFECTION PROPHYLAXIS
     Dosage: BEGINNING OF DOSAGE DAY: TRIAL PREINITIATION
     Route: 048
  4. HIRUDOID [Concomitant]
     Active Substance: GLYCOSAMINOGLYCANS
     Indication: ASTEATOSIS
     Dosage: PROPER QUANTITY, DOSE INTERVAL UNCERTAIN, AND BEGINNING OF DOSAGE DAY: TRIAL ?PREINITIATION
     Route: 061
  5. RITUXIMAB. [Suspect]
     Active Substance: RITUXIMAB
     Route: 042
     Dates: start: 20190402
  6. LANSOPRAZOLE. [Concomitant]
     Active Substance: LANSOPRAZOLE
     Indication: GASTRITIS PROPHYLAXIS
     Dosage: BEGINNING OF DOSAGE DAY: TRIAL PREINITIATION
     Route: 048
  7. RITUXIMAB. [Suspect]
     Active Substance: RITUXIMAB
     Indication: DIFFUSE LARGE B-CELL LYMPHOMA
     Dosage: MOST RECENT DOSE PRIOR TO EVENT ONSET: 25/JUL/2019?SIX CYCLES
     Route: 042
     Dates: start: 20190402
  8. MAGNESIUM OXIDE. [Concomitant]
     Active Substance: MAGNESIUM OXIDE
     Indication: CONSTIPATION
     Dosage: BEGINNING OF DOSAGE DAY: TRIAL PREINITIATION
     Route: 048
  9. WARFARIN [Concomitant]
     Active Substance: WARFARIN
     Indication: VENOUS THROMBOSIS
     Dosage: BEGINNING OF DOSAGE DAY: TRIAL PREINITIATION
     Route: 048
  10. FINIBAX [Concomitant]
     Active Substance: DORIPENEM MONOHYDRATE
     Route: 042
  11. TEPRENONE [Concomitant]
     Active Substance: TEPRENONE
     Route: 048
  12. POLATUZUMAB VEDOTIN. [Suspect]
     Active Substance: POLATUZUMAB VEDOTIN
     Indication: DIFFUSE LARGE B-CELL LYMPHOMA
     Dosage: MOST RECENT DOSE PRIOR TO EVENT ONSET: 25/JUL/2019?SIX CYCLES
     Route: 042
     Dates: start: 20190403
  13. LOXOPROFEN [Concomitant]
     Active Substance: LOXOPROFEN
     Route: 048

REACTIONS (1)
  - Klebsiella bacteraemia [Recovered/Resolved]

NARRATIVE: CASE EVENT DATE: 20190730
